FAERS Safety Report 8817701 (Version 1)
Quarter: 2012Q4

REPORT INFORMATION
  Report Type: 
  Country: CA (occurrence: CA)
  Receive Date: 20121001
  Receipt Date: 20121001
  Transmission Date: 20130627
  Serious: Yes (Other)
  Sender: FDA-Public Use
  Company Number: CA-PFIZER INC-2012222804

PATIENT
  Age: 60 Year
  Sex: Male
  Weight: 68.03 kg

DRUGS (1)
  1. CHAMPIX [Suspect]
     Indication: SMOKING CESSATION THERAPY
     Dosage: 1 mg, 2x/day
     Route: 048
     Dates: start: 20091113, end: 201002

REACTIONS (1)
  - Alopecia areata [Recovered/Resolved with Sequelae]
